FAERS Safety Report 21571744 (Version 6)
Quarter: 2023Q2

REPORT INFORMATION
  Report Type: Spontaneous
  Country: US (occurrence: US)
  Receive Date: 20221109
  Receipt Date: 20230511
  Transmission Date: 20230721
  Serious: Yes (Other)
  Sender: FDA-Public Use
  Company Number: US-BRISTOL-MYERS SQUIBB COMPANY-2022-134905

PATIENT
  Age: 83 Year
  Sex: Female

DRUGS (3)
  1. REVLIMID [Suspect]
     Active Substance: LENALIDOMIDE
     Indication: Plasma cell myeloma
     Dosage: FREQUENCY: TAKE 1 CAPSULE BY MOUTH EVERY DAY FOR 21 DAYS EVERY 28 DAYS
     Route: 048
  2. REVLIMID [Suspect]
     Active Substance: LENALIDOMIDE
     Route: 048
     Dates: start: 20221108
  3. REVLIMID [Suspect]
     Active Substance: LENALIDOMIDE
     Dosage: FREQUENCY: TAKE 1 CAPSULE BY MOUTH EVERY DAY FOR 21 DAYS EVERY 28 DAYS/TAKE 1 CAPSULE BY MOUTH ONCE
     Route: 048

REACTIONS (8)
  - Diarrhoea [Unknown]
  - Taste disorder [Unknown]
  - Decreased appetite [Recovered/Resolved]
  - Fatigue [Recovering/Resolving]
  - Dry skin [Recovering/Resolving]
  - Back pain [Recovering/Resolving]
  - Somnolence [Recovering/Resolving]
  - Dyspnoea [Recovering/Resolving]
